FAERS Safety Report 7494104-7 (Version None)
Quarter: 2011Q2

REPORT INFORMATION
  Report Type: 
  Country: None (occurrence: None)
  Receive Date: 20110520
  Receipt Date: 20110517
  Transmission Date: 20111010
  Serious: Yes (Hospitalization, Other)
  Sender: FDA-Public Use
  Company Number: US-ABBOTT-11P-163-0726253-00

PATIENT
  Sex: Male
  Weight: 81.72 kg

DRUGS (6)
  1. HUMIRA [Suspect]
     Indication: RHEUMATOID ARTHRITIS
     Dates: start: 20100701, end: 20110501
  2. UNKNOWN HYPOGLYCEMIC [Concomitant]
     Indication: DIABETES MELLITUS
     Route: 048
  3. UNKNOWN HEART PILL [Concomitant]
     Indication: CARDIAC DISORDER
     Route: 048
  4. UNKNOWN STERIOD [Concomitant]
     Indication: CHRONIC OBSTRUCTIVE PULMONARY DISEASE
     Route: 048
  5. UNKNOWN STERIOD [Concomitant]
     Indication: RHEUMATOID ARTHRITIS
  6. UNKNOWN INHALERS [Concomitant]
     Indication: CHRONIC OBSTRUCTIVE PULMONARY DISEASE
     Route: 055

REACTIONS (5)
  - BLOOD GLUCOSE INCREASED [None]
  - PAIN IN EXTREMITY [None]
  - DEHYDRATION [None]
  - ABSCESS LIMB [None]
  - JOINT STIFFNESS [None]
